FAERS Safety Report 12585772 (Version 2)
Quarter: 2016Q3

REPORT INFORMATION
  Report Type: Spontaneous
  Country: EG (occurrence: EG)
  Receive Date: 20160725
  Receipt Date: 20160727
  Transmission Date: 20161109
  Serious: Yes (Death, Hospitalization, Other)
  Sender: FDA-Public Use
  Company Number: EG-ROCHE-1800593

PATIENT
  Age: 80 Year
  Sex: Male

DRUGS (5)
  1. ASPIRIN. [Concomitant]
     Active Substance: ASPIRIN
     Route: 065
     Dates: end: 20160609
  2. XELODA [Suspect]
     Active Substance: CAPECITABINE
     Indication: COLORECTAL CANCER
     Route: 048
     Dates: start: 20160606, end: 20160606
  3. XELODA [Suspect]
     Active Substance: CAPECITABINE
     Route: 048
     Dates: start: 20160607, end: 20160608
  4. XELODA [Suspect]
     Active Substance: CAPECITABINE
     Route: 048
     Dates: start: 20160609, end: 20160609
  5. CLEXANE [Concomitant]
     Active Substance: ENOXAPARIN SODIUM
     Route: 065
     Dates: start: 20160610, end: 20160611

REACTIONS (19)
  - Haematemesis [Unknown]
  - Mucosal pain [Unknown]
  - Dysphagia [Unknown]
  - Blister [Unknown]
  - Overdose [Fatal]
  - White blood cell count decreased [Unknown]
  - Medication error [Fatal]
  - Speech disorder [Unknown]
  - Faeces discoloured [Unknown]
  - Cardiac arrest [Fatal]
  - Myocardial infarction [Unknown]
  - Stevens-Johnson syndrome [Unknown]
  - Lip swelling [Unknown]
  - Confusional state [Unknown]
  - Platelet count decreased [Unknown]
  - Dehydration [Unknown]
  - Throat tightness [Unknown]
  - Oedema [Unknown]
  - Amnesia [Unknown]

NARRATIVE: CASE EVENT DATE: 20160607
